FAERS Safety Report 7262218-2 (Version None)
Quarter: 2011Q1

REPORT INFORMATION
  Report Type: 
  Country: None (occurrence: None)
  Receive Date: 20110130
  Receipt Date: 20101114
  Transmission Date: 20110831
  Serious: No
  Sender: FDA-Public Use
  Company Number: US-ABBOTT-10P-163-0685420-00

PATIENT
  Age: 64 Year
  Sex: Female

DRUGS (7)
  1. ADVAIR [Concomitant]
     Indication: PRODUCT USED FOR UNKNOWN INDICATION
  2. BONIVA [Concomitant]
     Indication: OSTEOPOROSIS PROPHYLAXIS
  3. ACTOS [Concomitant]
     Indication: DIABETES MELLITUS
     Route: 048
  4. SPIRIVA [Concomitant]
     Indication: PRODUCT USED FOR UNKNOWN INDICATION
  5. HUMIRA [Suspect]
     Indication: RHEUMATOID ARTHRITIS
     Dates: start: 20080101, end: 20101031
  6. PREDNISONE [Concomitant]
     Indication: PRODUCT USED FOR UNKNOWN INDICATION
     Dosage: 7MG EVERY OTHER DAY, 8MG EVERY OTHER DAY
     Route: 048
  7. DIOVAN [Concomitant]
     Indication: HYPERTENSION
     Route: 048

REACTIONS (1)
  - NASOPHARYNGITIS [None]
